FAERS Safety Report 9766142 (Version 3)
Quarter: 2014Q1

REPORT INFORMATION
  Report Type: Report from Study
  Country: US (occurrence: US)
  Receive Date: 20131217
  Receipt Date: 20140210
  Transmission Date: 20141002
  Serious: Yes (Other)
  Sender: FDA-Public Use
  Company Number: US-ABBVIE-13P-163-1176261-00

PATIENT
  Sex: Male

DRUGS (13)
  1. HUMIRA [Suspect]
     Indication: PSORIATIC ARTHROPATHY
     Dates: end: 201311
  2. HUMIRA [Suspect]
     Dates: start: 201311
  3. MORPHINE [Concomitant]
     Indication: PRODUCT USED FOR UNKNOWN INDICATION
     Dosage: EVERY MORNING AND EVENING
  4. MORPHINE [Concomitant]
     Indication: PRODUCT USED FOR UNKNOWN INDICATION
     Dosage: EVERY NOON
  5. BACLOFEN [Concomitant]
     Indication: PAIN
  6. BACLOFEN [Concomitant]
     Indication: MUSCLE RELAXANT THERAPY
  7. LEXAPRO [Concomitant]
     Indication: DEPRESSION
  8. LEXAPRO [Concomitant]
     Indication: ANXIETY
  9. EFFEXOR [Concomitant]
     Indication: DEPRESSION
  10. EFFEXOR [Concomitant]
     Indication: ANXIETY
  11. AMITRIPTYLINE [Concomitant]
     Indication: ANXIETY
  12. PRIMIDONE [Concomitant]
     Indication: ESSENTIAL TREMOR
  13. LORAZEPAM [Concomitant]
     Indication: ANXIETY

REACTIONS (22)
  - Spinal pain [Not Recovered/Not Resolved]
  - Spinal fusion acquired [Not Recovered/Not Resolved]
  - Psoriatic arthropathy [Not Recovered/Not Resolved]
  - Essential tremor [Not Recovered/Not Resolved]
  - Fatigue [Not Recovered/Not Resolved]
  - Anxiety [Not Recovered/Not Resolved]
  - Constipation [Not Recovered/Not Resolved]
  - Diarrhoea [Not Recovered/Not Resolved]
  - Upper respiratory tract infection [Unknown]
  - Bronchitis [Unknown]
  - Pleurisy [Unknown]
  - Wound [Recovered/Resolved]
  - Oedema peripheral [Recovered/Resolved]
  - Localised infection [Not Recovered/Not Resolved]
  - Local swelling [Not Recovered/Not Resolved]
  - Fungal infection [Not Recovered/Not Resolved]
  - Tinea cruris [Not Recovered/Not Resolved]
  - Drug resistance [Not Recovered/Not Resolved]
  - Pain [Not Recovered/Not Resolved]
  - Joint swelling [Not Recovered/Not Resolved]
  - Back pain [Not Recovered/Not Resolved]
  - Arthralgia [Not Recovered/Not Resolved]
